FAERS Safety Report 11197620 (Version 2)
Quarter: 2015Q3

REPORT INFORMATION
  Report Type: Spontaneous
  Country: IL (occurrence: IL)
  Receive Date: 20150617
  Receipt Date: 20150713
  Transmission Date: 20151125
  Serious: Yes (Hospitalization, Other)
  Sender: FDA-Public Use
  Company Number: IL-ASTRAZENECA-2015SE58959

PATIENT
  Age: 56 Year
  Sex: Male
  Weight: 115 kg

DRUGS (6)
  1. TRITACE [Concomitant]
     Active Substance: RAMIPRIL
  2. BYDUREON [Suspect]
     Active Substance: EXENATIDE
     Indication: TYPE 2 DIABETES MELLITUS
     Route: 065
  3. METFORMIN [Concomitant]
     Active Substance: METFORMIN HYDROCHLORIDE
  4. NORMOLOL [Concomitant]
  5. CARTIA XT [Concomitant]
     Active Substance: DILTIAZEM HYDROCHLORIDE
  6. SIMVACOR [Concomitant]
     Active Substance: SIMVASTATIN

REACTIONS (1)
  - Pancreatitis [Recovered/Resolved]
